FAERS Safety Report 6119338-5 (Version None)
Quarter: 2009Q1

REPORT INFORMATION
  Report Type: 
  Country: None (occurrence: None)
  Receive Date: 20090316
  Receipt Date: 20090305
  Transmission Date: 20090719
  Serious: Yes (Other)
  Sender: FDA-Public Use
  Company Number: CL-ELI_LILLY_AND_COMPANY-CL200902004447

PATIENT
  Age: 17 Year
  Sex: Female
  Weight: 47 kg

DRUGS (2)
  1. STRATTERA [Suspect]
     Indication: ATTENTION DEFICIT/HYPERACTIVITY DISORDER
     Dosage: 18 MG, DAILY (1/D)
     Route: 048
     Dates: start: 20090212, end: 20090215
  2. ZYPREXA [Suspect]
     Indication: CATATONIA
     Dosage: 2.5 MG, UNKNOWN
     Route: 065

REACTIONS (5)
  - CATATONIA [None]
  - HYPERSOMNIA [None]
  - PARANOIA [None]
  - SPEECH DISORDER DEVELOPMENTAL [None]
  - THINKING ABNORMAL [None]
